FAERS Safety Report 6768847-4 (Version None)
Quarter: 2010Q2

REPORT INFORMATION
  Report Type: 
  Country: None (occurrence: None)
  Receive Date: 20100611
  Receipt Date: 20100601
  Transmission Date: 20101027
  Serious: Yes (Other)
  Sender: FDA-Public Use
  Company Number: 2010AL003051

PATIENT
  Age: 65 Year
  Sex: Male

DRUGS (5)
  1. CITALOPRAM HYDROBROMIDE [Suspect]
     Indication: DEPRESSION
     Dosage: 10 MG, QD;
     Dates: start: 20100120, end: 20100324
  2. SENNA [Concomitant]
  3. LACTULOSE [Concomitant]
  4. GAVISCON [Concomitant]
  5. DIAZEPAM [Concomitant]

REACTIONS (4)
  - CHROMATURIA [None]
  - DIABETES MELLITUS [None]
  - FATIGUE [None]
  - INSOMNIA [None]
